FAERS Safety Report 4551942-8 (Version None)
Quarter: 2004Q4

REPORT INFORMATION
  Report Type: 
  Country: None (occurrence: None)
  Receive Date: 20041217
  Receipt Date: 20041008
  Transmission Date: 20050328
  Serious: No
  Sender: FDA-Public Use
  Company Number: 2004-BP-09831BP

PATIENT
  Age: 73 Year
  Sex: Female

DRUGS (3)
  1. SPIRIVA [Suspect]
     Indication: CHRONIC OBSTRUCTIVE AIRWAYS DISEASE
     Dosage: 18 MCG (18  MCG), IH
     Route: 055
     Dates: start: 20040801
  2. FORADIL [Concomitant]
  3. ALDACTAZIDE [Concomitant]

REACTIONS (2)
  - CONJUNCTIVITIS [None]
  - PEAK EXPIRATORY FLOW RATE DECREASED [None]
